FAERS Safety Report 4524226-1 (Version None)
Quarter: 2004Q4

REPORT INFORMATION
  Report Type: 
  Country: None (occurrence: None)
  Receive Date: 20041209
  Receipt Date: 20041124
  Transmission Date: 20050328
  Serious: Yes (Hospitalization)
  Sender: FDA-Public Use
  Company Number: 210908

PATIENT
  Age: 52 Year
  Sex: Female
  Weight: 69 kg

DRUGS (5)
  1. HERCEPTIN [Suspect]
     Indication: BREAST CANCER
     Dosage: SEE IMAGE
     Route: 042
     Dates: start: 20021003, end: 20021003
  2. HERCEPTIN [Suspect]
     Indication: BREAST CANCER
     Dosage: SEE IMAGE
     Route: 042
     Dates: start: 20021024, end: 20030925
  3. CYCLOPHOSPHAMIDE [Concomitant]
  4. DOXORUBICIN (DOXORUBICIN HYDROCHLORIDE, DOXORUBICIN) [Concomitant]
  5. FLUOROURACIL [Concomitant]

REACTIONS (4)
  - ACUTE CORONARY SYNDROME [None]
  - ELECTROCARDIOGRAM PR SHORTENED [None]
  - PALPITATIONS [None]
  - SYNCOPE [None]
